FAERS Safety Report 4741799-4 (Version None)
Quarter: 2005Q3

REPORT INFORMATION
  Report Type: 
  Country: None (occurrence: None)
  Receive Date: 20050808
  Receipt Date: 20050726
  Transmission Date: 20060218
  Serious: Yes (Death, Other)
  Sender: FDA-Public Use
  Company Number: 2005107466

PATIENT
  Age: 48 Year
  Sex: Male

DRUGS (3)
  1. ARTHROTEC [Suspect]
     Indication: ILL-DEFINED DISORDER
     Dosage: (50 MG), ORAL
     Route: 048
     Dates: start: 20050601
  2. PAROXETINE HYDROCHLORIDE [Suspect]
     Indication: ILL-DEFINED DISORDER
     Dosage: (20 MG), ORAL
     Route: 048
     Dates: start: 20050101
  3. CANNABIS (CANNABIS0 [Suspect]
     Indication: ILL-DEFINED DISORDER

REACTIONS (4)
  - DRUG ABUSER [None]
  - DRUG TOXICITY [None]
  - MYOCARDITIS [None]
  - SUDDEN DEATH [None]
